FAERS Safety Report 20377993 (Version 1)
Quarter: 2022Q1

REPORT INFORMATION
  Report Type: Spontaneous
  Country: US (occurrence: US)
  Receive Date: 20220126
  Receipt Date: 20220126
  Transmission Date: 20220423
  Serious: No
  Sender: FDA-Public Use
  Company Number: US-ALLERGAN-2137352US

PATIENT
  Age: 4 Decade
  Sex: Female

DRUGS (3)
  1. UBRELVY [Suspect]
     Active Substance: UBROGEPANT
     Indication: Migraine
     Dosage: UNK
  2. BOTOX [Concomitant]
     Active Substance: ONABOTULINUMTOXINA
     Indication: Migraine
  3. AIMOVIG [Concomitant]
     Active Substance: ERENUMAB-AOOE

REACTIONS (1)
  - Diarrhoea [Unknown]
